FAERS Safety Report 9026005 (Version 1)
Quarter: 2013Q1

REPORT INFORMATION
  Report Type: Spontaneous
  Country: BR (occurrence: BR)
  Receive Date: 20130122
  Receipt Date: 20130122
  Transmission Date: 20140127
  Serious: Yes (Other)
  Sender: FDA-Public Use
  Company Number: PHHY2012BR113403

PATIENT
  Age: 75 Year
  Sex: Female

DRUGS (3)
  1. DIOVAN TRIPLE [Suspect]
     Indication: ARRHYTHMIA
     Dosage: 1 DF (160 MG VALS +5 MG AMLO + 12.5 MG HCT), A DAY
     Route: 048
  2. DIOVAN TRIPLE [Suspect]
     Indication: HYPERTENSION
  3. AMLODIPINE [Suspect]

REACTIONS (4)
  - Anxiety [Recovered/Resolved]
  - Blood pressure inadequately controlled [Recovered/Resolved]
  - Local swelling [Recovered/Resolved]
  - Wrong technique in drug usage process [Unknown]
